FAERS Safety Report 5779208-9 (Version None)
Quarter: 2008Q2

REPORT INFORMATION
  Report Type: 
  Country: None (occurrence: None)
  Receive Date: 20080619
  Receipt Date: 20080611
  Transmission Date: 20081010
  Serious: Yes (Hospitalization)
  Sender: FDA-Public Use
  Company Number: US-BAYER-200823463NA

PATIENT
  Age: 29 Year
  Sex: Female
  Weight: 89 kg

DRUGS (2)
  1. ULTRAVIST 300 [Suspect]
     Indication: COMPUTERISED TOMOGRAM KIDNEY
     Dosage: TOTAL DAILY DOSE: 150 ML  UNIT DOSE: 150 ML
     Route: 042
     Dates: start: 20080515, end: 20080515
  2. UNSPECIFIED BIRTH CONTROL PILLS [Concomitant]

REACTIONS (13)
  - ANAPHYLACTOID REACTION [None]
  - ANGIOEDEMA [None]
  - AURICULAR SWELLING [None]
  - CYANOSIS [None]
  - DYSPHAGIA [None]
  - DYSPNOEA [None]
  - FLUSHING [None]
  - HYPOTENSION [None]
  - LIP SWELLING [None]
  - NAUSEA [None]
  - RASH ERYTHEMATOUS [None]
  - SNEEZING [None]
  - SWOLLEN TONGUE [None]
